FAERS Safety Report 20116285 (Version 2)
Quarter: 2022Q2

REPORT INFORMATION
  Report Type: Spontaneous
  Country: RO (occurrence: RO)
  Receive Date: 20211126
  Receipt Date: 20220513
  Transmission Date: 20220721
  Serious: Yes (Death, Life-Threatening, Hospitalization, Other)
  Sender: FDA-Public Use
  Company Number: RO-SUN PHARMACEUTICAL INDUSTRIES LTD-2021R1-318738

PATIENT
  Age: 44 Year
  Sex: Male

DRUGS (2)
  1. METHOTREXATE [Suspect]
     Active Substance: METHOTREXATE
     Indication: Rheumatoid arthritis
     Dosage: UNK
     Route: 065
  2. TOCILIZUMAB [Suspect]
     Active Substance: TOCILIZUMAB
     Indication: Rheumatoid arthritis
     Dosage: UNK
     Route: 065

REACTIONS (9)
  - Necrotising myositis [Fatal]
  - Disseminated intravascular coagulation [Fatal]
  - Necrotising soft tissue infection [Unknown]
  - Multiple organ dysfunction syndrome [Unknown]
  - Pancytopenia [Unknown]
  - Hypoproteinaemia [Unknown]
  - Acute kidney injury [Unknown]
  - Rhabdomyolysis [Unknown]
  - Haemorrhage [Unknown]
